FAERS Safety Report 18619937 (Version 8)
Quarter: 2025Q1

REPORT INFORMATION
  Report Type: Spontaneous
  Country: US (occurrence: US)
  Receive Date: 20201215
  Receipt Date: 20250314
  Transmission Date: 20250408
  Serious: No
  Sender: PFIZER
  Company Number: US-PFIZER INC-2020422142

PATIENT
  Age: 77 Year
  Sex: Male

DRUGS (32)
  1. BOSULIF [Suspect]
     Active Substance: BOSUTINIB MONOHYDRATE
     Indication: Chronic myeloid leukaemia
  2. BOSULIF [Suspect]
     Active Substance: BOSUTINIB MONOHYDRATE
     Dosage: 100 MG, 1X/DAY
     Route: 048
  3. BOSULIF [Suspect]
     Active Substance: BOSUTINIB MONOHYDRATE
     Dosage: 100 MG, 1X/DAY
     Route: 048
     Dates: start: 20201219
  4. ALPHA LIPOIC ACID [Concomitant]
     Active Substance: .ALPHA.-LIPOIC ACID
  5. ASPIRIN [Concomitant]
     Active Substance: ASPIRIN
  6. BORON [Concomitant]
     Active Substance: BORON
  7. BUPROPION HYDROCHLORIDE [Concomitant]
     Active Substance: BUPROPION HYDROCHLORIDE
  8. CHROMIUM PICOLINATE [Concomitant]
     Active Substance: CHROMIUM PICOLINATE
  9. CINNAMON [Concomitant]
     Active Substance: CINNAMON
  10. FENOFIBRATE [Concomitant]
     Active Substance: FENOFIBRATE
  11. FERROUS SULFATE [Concomitant]
     Active Substance: FERROUS SULFATE
  12. FUROSEMIDE [Concomitant]
     Active Substance: FUROSEMIDE
  13. HERBALS [Concomitant]
     Active Substance: HERBALS
  14. HUMULIN R [Concomitant]
     Active Substance: INSULIN HUMAN
  15. HYDRALAZINE HCL [Concomitant]
     Active Substance: HYDRALAZINE HYDROCHLORIDE
  16. JARDIANCE [Concomitant]
     Active Substance: EMPAGLIFLOZIN
  17. LEVETIRACETAM [Concomitant]
     Active Substance: LEVETIRACETAM
  18. MAGNESIUM [Concomitant]
     Active Substance: MAGNESIUM
  19. METOPROLOL TARTRATE [Concomitant]
     Active Substance: METOPROLOL TARTRATE
  20. POTASSIUM [Concomitant]
     Active Substance: POTASSIUM
  21. PROCARDIA [Concomitant]
     Active Substance: NIFEDIPINE
  22. TAMSULOSIN [Concomitant]
     Active Substance: TAMSULOSIN
  23. TRADJENTA [Concomitant]
     Active Substance: LINAGLIPTIN
  24. TRELEGY ELLIPTA [Concomitant]
     Active Substance: FLUTICASONE FUROATE\UMECLIDINIUM BROMIDE\VILANTEROL TRIFENATATE
  25. TYLENOL [Concomitant]
     Active Substance: ACETAMINOPHEN
  26. VITAMIN B12 [Concomitant]
     Active Substance: CYANOCOBALAMIN
  27. XARELTO [Concomitant]
     Active Substance: RIVAROXABAN
  28. ZINC [Concomitant]
     Active Substance: ZINC
  29. CURCUMIN [Concomitant]
     Active Substance: CURCUMIN
  30. OLEA EUROPAEA LEAF [Concomitant]
     Active Substance: OLEA EUROPAEA LEAF
  31. DIETARY SUPPLEMENT [Concomitant]
     Active Substance: DIETARY SUPPLEMENT
  32. GARLIC [Concomitant]
     Active Substance: GARLIC

REACTIONS (1)
  - Rash pruritic [Unknown]
